FAERS Safety Report 12568861 (Version 1)
Quarter: 2016Q3

REPORT INFORMATION
  Report Type: Report from Study
  Country: US (occurrence: US)
  Receive Date: 20160719
  Receipt Date: 20160719
  Transmission Date: 20161109
  Serious: Yes (Other)
  Sender: FDA-Public Use
  Company Number: US-ROCHE-1795867

PATIENT
  Age: 68 Year
  Sex: Female
  Weight: 62.7 kg

DRUGS (4)
  1. ERLOTINIB [Suspect]
     Active Substance: ERLOTINIB
     Indication: PANCREATIC CARCINOMA
     Dosage: COURSE 1001
     Route: 065
     Dates: start: 20111209
  2. VISMODEGIB [Suspect]
     Active Substance: VISMODEGIB
     Indication: ADENOCARCINOMA PANCREAS
     Dosage: COURSE 1001
     Route: 065
     Dates: start: 20111209
  3. VISMODEGIB [Suspect]
     Active Substance: VISMODEGIB
     Dosage: COURSE 1002
     Route: 065
     Dates: start: 20120106, end: 20120203
  4. ERLOTINIB [Suspect]
     Active Substance: ERLOTINIB
     Dosage: COURSE 1002
     Route: 065
     Dates: start: 20120106, end: 20120203

REACTIONS (1)
  - Dermatitis acneiform [Unknown]
